FAERS Safety Report 7411051-7 (Version None)
Quarter: 2011Q2

REPORT INFORMATION
  Report Type: 
  Country: None (occurrence: None)
  Receive Date: 20110413
  Receipt Date: 20110405
  Transmission Date: 20111010
  Serious: Yes (Hospitalization)
  Sender: FDA-Public Use
  Company Number: CA-JNJFOC-20110400499

PATIENT
  Sex: Female
  Weight: 119 kg

DRUGS (21)
  1. OMEPRAZOLE [Concomitant]
     Route: 048
  2. AMITRIPTYLINE [Concomitant]
     Route: 048
  3. ALBUTEROL SULFATE AUTOHALER [Concomitant]
     Route: 055
  4. CITALOPRAM [Concomitant]
     Route: 048
  5. MAALOX [Concomitant]
     Route: 048
  6. CYCLOBENZAPRINE [Concomitant]
     Route: 048
  7. NITRO-DUR [Concomitant]
     Route: 061
  8. BICARBONATE [Concomitant]
     Route: 048
  9. MICARDIS [Concomitant]
     Route: 048
  10. ENTERIC COATED ACETYLSALICYLIC ACID [Concomitant]
     Route: 048
  11. TYLENOL W/ CODEINE [Concomitant]
     Route: 048
  12. GOLIMUMAB [Suspect]
     Indication: PSORIATIC ARTHROPATHY
     Route: 058
  13. APO-GLICLAZIDE [Concomitant]
     Route: 048
  14. ALPRAZOLAM [Concomitant]
     Route: 048
  15. GOLIMUMAB [Suspect]
     Route: 058
  16. RABEPRAZOLE SODIUM [Concomitant]
     Route: 048
  17. METFORMIN HCL [Concomitant]
     Route: 048
  18. CRESTOR [Concomitant]
     Route: 048
  19. PRILOSEC [Concomitant]
     Route: 048
  20. PREVACID [Concomitant]
     Route: 048
  21. RANITIDINE [Concomitant]
     Route: 048

REACTIONS (1)
  - PNEUMONIA [None]
